FAERS Safety Report 7596118-5 (Version None)
Quarter: 2011Q3

REPORT INFORMATION
  Report Type: 
  Country: None (occurrence: None)
  Receive Date: 20110707
  Receipt Date: 20110629
  Transmission Date: 20111222
  Serious: Yes (Death)
  Sender: FDA-Public Use
  Company Number: US-BAXTER-2011BH020272

PATIENT
  Sex: Female

DRUGS (2)
  1. ANTIBIOTIC [Concomitant]
     Indication: PNEUMONIA
     Route: 065
  2. DIANEAL [Suspect]
     Indication: PERITONEAL DIALYSIS
     Route: 033
     Dates: end: 20110619

REACTIONS (2)
  - PNEUMONIA [None]
  - RESPIRATORY FAILURE [None]
